FAERS Safety Report 15453743 (Version 2)
Quarter: 2018Q4

REPORT INFORMATION
  Report Type: Spontaneous
  Country: US (occurrence: US)
  Receive Date: 20181001
  Receipt Date: 20181002
  Transmission Date: 20190204
  Serious: No
  Sender: FDA-Public Use
  Company Number: US-009507513-1810USA000289

PATIENT
  Age: 16 Year
  Sex: Male

DRUGS (1)
  1. DULERA [Suspect]
     Active Substance: FORMOTEROL FUMARATE DIHYDRATE\MOMETASONE FUROATE
     Indication: ASTHMA
     Dosage: STRENGTH: 200/5 MCG, 2 PUFFS TWICE A DAY
     Route: 055
     Dates: start: 201809

REACTIONS (5)
  - Expired product administered [Unknown]
  - Product quality issue [Recovered/Resolved]
  - Product dose omission [Unknown]
  - Wrong technique in product usage process [Unknown]
  - Asthma [Recovered/Resolved]

NARRATIVE: CASE EVENT DATE: 201809
